FAERS Safety Report 5547241-8 (Version None)
Quarter: 2007Q4

REPORT INFORMATION
  Report Type: 
  Country: None (occurrence: None)
  Receive Date: 20071211
  Receipt Date: 20071206
  Transmission Date: 20080405
  Serious: Yes (Other)
  Sender: FDA-Public Use
  Company Number: A0697743A

PATIENT
  Sex: Female

DRUGS (3)
  1. COREG [Suspect]
     Dosage: 12.5MG TWICE PER DAY
     Route: 048
  2. LISINOPRIL [Concomitant]
  3. COUMADIN [Concomitant]

REACTIONS (2)
  - FLATULENCE [None]
  - URINARY INCONTINENCE [None]
